FAERS Safety Report 15329956 (Version 1)
Quarter: 2018Q3

REPORT INFORMATION
  Report Type: Spontaneous
  Country: US (occurrence: US)
  Receive Date: 20180824
  Receipt Date: 20180824
  Transmission Date: 20181010
  Serious: Yes (Disabling)
  Sender: FDA-Public Use
  Company Number: None

PATIENT
  Age: 52 Year
  Sex: Female
  Weight: 75.6 kg

DRUGS (3)
  1. ARMOUR THYROID [Concomitant]
     Active Substance: THYROID, PORCINE
  2. NO LONGER HAVE BOTTLE BUT PRODUCT WAS CIPROFLOXIN [Suspect]
     Active Substance: CIPROFLOXACIN
     Indication: DIVERTICULITIS
  3. IBUPROFEN. [Concomitant]
     Active Substance: IBUPROFEN

REACTIONS (5)
  - Paraesthesia [None]
  - Musculoskeletal pain [None]
  - Pain in extremity [None]
  - Arthralgia [None]
  - Muscle strain [None]

NARRATIVE: CASE EVENT DATE: 20131001
